FAERS Safety Report 7627696-5 (Version None)
Quarter: 2011Q3

REPORT INFORMATION
  Report Type: 
  Country: None (occurrence: None)
  Receive Date: 20110721
  Receipt Date: 20110628
  Transmission Date: 20111222
  Serious: No
  Sender: FDA-Public Use
  Company Number: US-B.I. PHARMACEUTICALS,INC./RIDGEFIELD-2011-BP-16551BP

PATIENT
  Sex: Male

DRUGS (1)
  1. MOBIC [Suspect]

REACTIONS (7)
  - BODY TEMPERATURE FLUCTUATION [None]
  - HYPERSENSITIVITY [None]
  - HYPOTHERMIA [None]
  - ABDOMINAL PAIN UPPER [None]
  - NAUSEA [None]
  - GASTROINTESTINAL HAEMORRHAGE [None]
  - HAEMATEMESIS [None]
